FAERS Safety Report 8849781 (Version 4)
Quarter: 2013Q1

REPORT INFORMATION
  Report Type: Report from Study
  Country: FI (occurrence: FI)
  Receive Date: 20121019
  Receipt Date: 20130314
  Transmission Date: 20140127
  Serious: Yes (Death, Hospitalization)
  Sender: FDA-Public Use
  Company Number: PHHO2012FI013304

PATIENT
  Age: 41 Year
  Sex: Male
  Weight: 64.2 kg

DRUGS (5)
  1. FTY [Suspect]
     Indication: MULTIPLE SCLEROSIS
     Dosage: 0.5 MG, QD
     Route: 048
     Dates: start: 20110222, end: 20121012
  2. SIMVASTATIN [Concomitant]
     Indication: HYPERCHOLESTEROLAEMIA
     Dosage: 20 MG, QD
     Dates: start: 20120220
  3. BACLOFEN [Concomitant]
     Indication: MUSCLE SPASTICITY
     Dosage: 10 MG, TID
     Dates: start: 20120318
  4. DOXAL [Concomitant]
     Indication: INSOMNIA
     Dosage: 50 MG, UNK
     Dates: start: 200505
  5. ZOLPIDEM [Concomitant]
     Indication: INSOMNIA
     Dosage: 15 MG, UNK
     Dates: start: 200505

REACTIONS (2)
  - Completed suicide [Fatal]
  - Major depression [Not Recovered/Not Resolved]
